FAERS Safety Report 23587265 (Version 2)
Quarter: 2024Q2

REPORT INFORMATION
  Report Type: Spontaneous
  Country: US (occurrence: US)
  Receive Date: 20240301
  Receipt Date: 20240508
  Transmission Date: 20240715
  Serious: No
  Sender: FDA-Public Use
  Company Number: US-Albireo AB-2022ALB000196; US-PPDUS-2022ALB000319

PATIENT
  Age: 27 Year
  Sex: Male

DRUGS (2)
  1. BYLVAY [Suspect]
     Active Substance: ODEVIXIBAT
     Indication: Biliary obstruction
     Route: 048
     Dates: start: 20221218
  2. BYLVAY [Suspect]
     Active Substance: ODEVIXIBAT
     Indication: Pruritus
     Route: 048

REACTIONS (4)
  - Product use issue [Recovered/Resolved]
  - Pruritus [Recovered/Resolved]
  - Gastrointestinal pain [Not Recovered/Not Resolved]
  - Treatment noncompliance [Not Recovered/Not Resolved]
